FAERS Safety Report 7475857-0 (Version None)
Quarter: 2011Q2

REPORT INFORMATION
  Report Type: 
  Country: None (occurrence: None)
  Receive Date: 20110512
  Receipt Date: 20110509
  Transmission Date: 20111010
  Serious: Yes (Hospitalization)
  Sender: FDA-Public Use
  Company Number: JP-ABBOTT-11P-087-0720365-00

PATIENT
  Sex: Male
  Weight: 90 kg

DRUGS (5)
  1. BIPERIDEN HYDROCHLORIDE TAB [Suspect]
     Indication: PARKINSONISM
     Dosage: 1 MG DAILY
     Route: 048
     Dates: start: 20070704, end: 20100129
  2. PHENOBARBITAL TAB [Suspect]
     Indication: DELIRIUM
     Dosage: 1 DOSAGE FORM DAILY
     Route: 048
     Dates: start: 20070704, end: 20100129
  3. FAMOTIDINE [Suspect]
     Indication: GASTRITIS
     Dosage: 40 MG DAILY
     Route: 048
     Dates: start: 20070704, end: 20100129
  4. NEULEPTIL [Suspect]
     Indication: DELIRIUM
     Dosage: 10 MG DAILY
     Route: 048
     Dates: start: 20070704, end: 20100129
  5. ROHYPNOL [Concomitant]
     Indication: DELIRIUM
     Dosage: 2 MG DAILY
     Route: 048
     Dates: start: 20070401, end: 20100126

REACTIONS (3)
  - DELIRIUM [None]
  - SLEEP-RELATED EATING DISORDER [None]
  - RESTLESS LEGS SYNDROME [None]
